FAERS Safety Report 9587565 (Version 1)
Quarter: 2013Q4

REPORT INFORMATION
  Report Type: Spontaneous
  Country: JP (occurrence: JP)
  Receive Date: 20131003
  Receipt Date: 20131003
  Transmission Date: 20140711
  Serious: Yes (Other)
  Sender: FDA-Public Use
  Company Number: PHHY2013JP105492

PATIENT
  Sex: 0

DRUGS (5)
  1. SENNOSIDES A AND B [Suspect]
     Indication: CONSTIPATION
     Dosage: UNK
  2. PANTETHINE [Suspect]
     Indication: CONSTIPATION
  3. MAGNESIUM OXIDE [Suspect]
     Indication: CONSTIPATION
  4. SODIUM PICOSULFATE [Suspect]
     Indication: CONSTIPATION
  5. FENTANYL [Concomitant]
     Indication: NEOPLASM MALIGNANT
     Dosage: 8.4 MG, Q72H
     Route: 062

REACTIONS (1)
  - Drug ineffective [Recovered/Resolved]
